FAERS Safety Report 13616985 (Version 1)
Quarter: 2017Q2

REPORT INFORMATION
  Report Type: Spontaneous
  Country: US (occurrence: US)
  Receive Date: 20170606
  Receipt Date: 20170606
  Transmission Date: 20170830
  Serious: Yes (Other)
  Sender: FDA-Public Use
  Company Number: US-SA-2016SA139620

PATIENT
  Sex: Female

DRUGS (25)
  1. COLECALCIFEROL [Concomitant]
     Active Substance: CHOLECALCIFEROL
     Dosage: DOSE:1000 UNIT(S)
     Route: 048
  2. FISH OIL [Concomitant]
     Active Substance: FISH OIL
     Route: 048
  3. FEMARA [Concomitant]
     Active Substance: LETROZOLE
  4. AFINITOR [Concomitant]
     Active Substance: EVEROLIMUS
     Dates: start: 20160615
  5. CHLOROPHYLL [Concomitant]
     Route: 048
  6. CYCLOBENZAPRINE. [Concomitant]
     Active Substance: CYCLOBENZAPRINE
     Route: 048
  7. NOVOLOG [Concomitant]
     Active Substance: INSULIN ASPART
     Dosage: BEFORE EACH MEAL; SLIDING SCALE
  8. COMPAZINE [Concomitant]
     Active Substance: PROCHLORPERAZINE MALEATE
     Indication: VOMITING
     Dosage: EVERY 6 HOURS AS NEEDED
     Route: 048
  9. COLACE [Concomitant]
     Active Substance: DOCUSATE SODIUM
  10. DELTASONE [Concomitant]
     Active Substance: PREDNISONE
     Dosage: WITH FOOD?1TIDX2 D?1BIDX2D?1QDX2D
  11. PRINIVIL [Concomitant]
     Active Substance: LISINOPRIL
  12. ZESTRIL [Concomitant]
     Active Substance: LISINOPRIL
  13. TAMOXIFEN [Concomitant]
     Active Substance: TAMOXIFEN
     Dates: start: 20150128
  14. NEURONTIN [Concomitant]
     Active Substance: GABAPENTIN
     Route: 048
  15. IBRANCE [Concomitant]
     Active Substance: PALBOCICLIB
     Dates: start: 20151020
  16. AROMASIN [Concomitant]
     Active Substance: EXEMESTANE
     Route: 048
  17. ULTRAM [Concomitant]
     Active Substance: TRAMADOL HYDROCHLORIDE
     Indication: PAIN
     Dosage: EVERY 6 HOURS AS NEEDED
     Route: 048
  18. LANTUS [Suspect]
     Active Substance: INSULIN GLARGINE
     Dosage: DOSE:38 UNIT(S)
     Route: 058
  19. COMPAZINE [Concomitant]
     Active Substance: PROCHLORPERAZINE MALEATE
     Indication: NAUSEA
     Dosage: EVERY 6 HOURS AS NEEDED
     Route: 048
  20. COUMADIN [Concomitant]
     Active Substance: WARFARIN SODIUM
     Dosage: 5 MG ON MON, THUR; 7.5 MG ALL OTHER DAYS
  21. DILAUDID [Concomitant]
     Active Substance: HYDROMORPHONE HYDROCHLORIDE
  22. FASLODEX [Concomitant]
     Active Substance: FULVESTRANT
     Dates: start: 20151020
  23. EVEROLIMUS [Concomitant]
     Active Substance: EVEROLIMUS
     Route: 048
  24. EXEMESTANE. [Concomitant]
     Active Substance: EXEMESTANE
     Route: 048
     Dates: start: 20160615
  25. ROXICODONE [Concomitant]
     Active Substance: OXYCODONE HYDROCHLORIDE
     Indication: PAIN
     Dosage: IMMEDIATE RELEASE TABLET?EVERY FOUR HOURS AS NEEDED
     Route: 048

REACTIONS (1)
  - Diabetes mellitus inadequate control [Unknown]
